FAERS Safety Report 6169097-5 (Version None)
Quarter: 2009Q2

REPORT INFORMATION
  Report Type: 
  Country: None (occurrence: None)
  Receive Date: 20090427
  Receipt Date: 20090413
  Transmission Date: 20091009
  Serious: Yes (Hospitalization, Disabling, Other)
  Sender: FDA-Public Use
  Company Number: US-ROCHE-407485

PATIENT
  Sex: Male
  Weight: 65.8 kg

DRUGS (8)
  1. ACCUTANE [Suspect]
     Indication: ACNE
     Route: 048
     Dates: start: 20021201, end: 20030301
  2. ACCUTANE [Suspect]
     Route: 048
     Dates: start: 20030301, end: 20030601
  3. SULFASALAZINE [Concomitant]
     Indication: COLITIS
  4. CELEBREX [Concomitant]
     Indication: ARTHRITIS
  5. PRILOSEC [Concomitant]
  6. ADVIL [Concomitant]
  7. IBUPROFEN [Concomitant]
  8. MOTRIN [Concomitant]

REACTIONS (22)
  - ADJUSTMENT DISORDER WITH DEPRESSED MOOD [None]
  - AFFECT LABILITY [None]
  - AGGRESSION [None]
  - AGITATION [None]
  - ANGER [None]
  - ANXIETY [None]
  - BIPOLAR DISORDER [None]
  - COLITIS ULCERATIVE [None]
  - DELIRIUM [None]
  - DEPRESSION [None]
  - DRY SKIN [None]
  - FACIAL BONES FRACTURE [None]
  - FOOT FRACTURE [None]
  - GASTROENTERITIS [None]
  - GASTROOESOPHAGEAL REFLUX DISEASE [None]
  - HEADACHE [None]
  - IMPULSIVE BEHAVIOUR [None]
  - INJURY [None]
  - PANIC ATTACK [None]
  - SUICIDAL IDEATION [None]
  - SUICIDE ATTEMPT [None]
  - VISUAL ACUITY REDUCED [None]
